FAERS Safety Report 5653926-5 (Version None)
Quarter: 2008Q1

REPORT INFORMATION
  Report Type: 
  Country: None (occurrence: None)
  Receive Date: 20080306
  Receipt Date: 20080220
  Transmission Date: 20080703
  Serious: Yes (Other)
  Sender: FDA-Public Use
  Company Number: NO-PFIZER INC-2007047246

PATIENT
  Sex: Female

DRUGS (2)
  1. ZYVOX [Suspect]
     Indication: STAPHYLOCOCCAL INFECTION
     Dates: start: 20070510, end: 20070511
  2. ZYVOX [Suspect]
     Indication: SUBCUTANEOUS ABSCESS

REACTIONS (5)
  - DIZZINESS [None]
  - NAUSEA [None]
  - SWOLLEN TONGUE [None]
  - TREMOR [None]
  - VISION BLURRED [None]
